FAERS Safety Report 5032015-7 (Version None)
Quarter: 2006Q2

REPORT INFORMATION
  Report Type: 
  Country: None (occurrence: None)
  Receive Date: 20060609
  Receipt Date: 20060518
  Transmission Date: 20061013
  Serious: Yes (Hospitalization)
  Sender: FDA-Public Use
  Company Number: 200610087BYL

PATIENT
  Age: 23 Month
  Sex: Female
  Weight: 9 kg

DRUGS (6)
  1. GAMIMUNE N 5% [Suspect]
     Indication: KAWASAKI'S DISEASE
     Dosage: 17.5 G, TOTAL DAILY, INTRAVENOUS
     Route: 042
     Dates: start: 20050801
  2. VENILON-I (IMMUNOGLOBULIN HUMAN NORMAL) [Suspect]
     Indication: KAWASAKI'S DISEASE
     Dosage: 17.5 G, TOTAL DAILY, INTRAVENOUS
     Route: 042
     Dates: start: 20050730
  3. ASPIRIN [Suspect]
     Indication: KAWASAKI'S DISEASE
     Dosage: ORAL
     Route: 048
     Dates: start: 20050730, end: 20050902
  4. SOLU-MEDROL [Concomitant]
  5. PREDNISOLONE [Concomitant]
  6. BRUFEN [Concomitant]

REACTIONS (3)
  - C-REACTIVE PROTEIN INCREASED [None]
  - DRUG INEFFECTIVE [None]
  - PYREXIA [None]
